FAERS Safety Report 6271523-8 (Version None)
Quarter: 2009Q3

REPORT INFORMATION
  Report Type: 
  Country: None (occurrence: None)
  Receive Date: 20090717
  Receipt Date: 20090703
  Transmission Date: 20100115
  Serious: Yes (Other)
  Sender: FDA-Public Use
  Company Number: GB-PFIZER INC-2009235329

PATIENT
  Age: 51 Year

DRUGS (2)
  1. LYRICA [Suspect]
     Indication: EPILEPSY
     Dosage: UNK
  2. PHENYTOIN AND PHENYTOIN SODIUM [Suspect]
     Indication: EPILEPSY
     Dosage: UNK

REACTIONS (1)
  - HALLUCINATION [None]
